FAERS Safety Report 16829362 (Version 1)
Quarter: 2019Q3

REPORT INFORMATION
  Report Type: Spontaneous
  Country: US (occurrence: US)
  Receive Date: 20190919
  Receipt Date: 20190919
  Transmission Date: 20191005
  Serious: No
  Sender: FDA-Public Use
  Company Number: US-AMERICAN REGENT INC-20190301

PATIENT
  Sex: Female

DRUGS (1)
  1. INJECTAFER [Suspect]
     Active Substance: FERRIC CARBOXYMALTOSE
     Indication: PRODUCT USED FOR UNKNOWN INDICATION
     Dosage: UNKNOWN 45 MINUTES
     Route: 042
     Dates: start: 20190216, end: 20190216

REACTIONS (13)
  - Insomnia [Unknown]
  - Photosensitivity reaction [Unknown]
  - Dizziness [Unknown]
  - Nausea [Unknown]
  - Myalgia [Unknown]
  - Back pain [Unknown]
  - Swelling face [Unknown]
  - Heart rate increased [Unknown]
  - Influenza like illness [Unknown]
  - Headache [Unknown]
  - Muscle spasms [Unknown]
  - Pain in jaw [Unknown]
  - Decreased appetite [Unknown]

NARRATIVE: CASE EVENT DATE: 201902
